FAERS Safety Report 8829911 (Version 1)
Quarter: 2012Q4

REPORT INFORMATION
  Report Type: 
  Country: FI (occurrence: FI)
  Receive Date: 20121008
  Receipt Date: 20121008
  Transmission Date: 20130627
  Serious: Yes (Death, Other)
  Sender: FDA-Public Use
  Company Number: FI-B.I. PHARMACEUTICALS,INC./RIDGEFIELD-2012-EU-04985GD

PATIENT
  Age: 73 Year
  Sex: Male

DRUGS (5)
  1. ACTILYSE [Suspect]
     Indication: ISCHAEMIC STROKE
     Dosage: total dose 0.9 mg/kg from which 10% given as a bolus and the remaining 90% as a continuous infusion
     Route: 042
     Dates: start: 20071015, end: 20071015
  2. ASASANTIN RETARD [Suspect]
  3. AT2-BLOCKER [Concomitant]
  4. DIURETICS [Concomitant]
  5. STATIN [Concomitant]

REACTIONS (4)
  - Death [Fatal]
  - Cerebral haemorrhage [Unknown]
  - Cerebral haemorrhage [Unknown]
  - Brain oedema [Unknown]
